FAERS Safety Report 14974302 (Version 2)
Quarter: 2018Q2

REPORT INFORMATION
  Report Type: Spontaneous
  Country: ES (occurrence: ES)
  Receive Date: 20180605
  Receipt Date: 20180621
  Transmission Date: 20180711
  Serious: Yes (Other)
  Sender: FDA-Public Use
  Company Number: ES-SAOL THERAPEUTICS-2018SAO00809

PATIENT
  Sex: Male

DRUGS (2)
  1. LIORESAL [Suspect]
     Active Substance: BACLOFEN
     Dosage: 509.7 ?G, \DAY - FLEX DOSE
  2. LIORESAL [Suspect]
     Active Substance: BACLOFEN
     Dosage: 509 ?G, \DAY
     Route: 037

REACTIONS (2)
  - Drug dose omission [Recovered/Resolved]
  - Drug withdrawal syndrome [Recovered/Resolved]
